FAERS Safety Report 11794778 (Version 2)
Quarter: 2017Q4

REPORT INFORMATION
  Report Type: Spontaneous
  Country: US (occurrence: US)
  Receive Date: 20151202
  Receipt Date: 20171016
  Transmission Date: 20180320
  Serious: Yes (Hospitalization)
  Sender: FDA-Public Use
  Company Number: US-IMPAX LABORATORIES, INC-2015-IPXL-01199

PATIENT
  Age: 64 Year
  Sex: Female

DRUGS (12)
  1. BACLOFEN. [Suspect]
     Active Substance: BACLOFEN
     Dosage: DOSE INCREASED, 135 ?G, DAILY
     Route: 037
  2. MULTIVITAMIN [Concomitant]
     Active Substance: VITAMINS
     Indication: PRODUCT USED FOR UNKNOWN INDICATION
     Dosage: UNK
     Route: 065
  3. CLONAZEPAM. [Concomitant]
     Active Substance: CLONAZEPAM
     Indication: PRODUCT USED FOR UNKNOWN INDICATION
     Dosage: 0.5 MG EVERY BEDTIME, AS NEEDED
     Route: 065
  4. OXYBUTYNIN. [Concomitant]
     Active Substance: OXYBUTYNIN CHLORIDE
     Indication: PRODUCT USED FOR UNKNOWN INDICATION
     Dosage: 15 MG, UNK
     Route: 065
  5. OXYCODONE AND ACETAMINOPHEN [Concomitant]
     Active Substance: ACETAMINOPHEN\OXYCODONE HYDROCHLORIDE
     Indication: PRODUCT USED FOR UNKNOWN INDICATION
     Dosage: 5/325 MG EVERY FOUR HOURS AS NEEDED
     Route: 065
  6. DESVENLAFAXINE. [Concomitant]
     Active Substance: DESVENLAFAXINE
     Indication: SEIZURE
     Dosage: 150 MG, UNK
     Route: 065
  7. BACLOFEN. [Suspect]
     Active Substance: BACLOFEN
     Dosage: TITRATED DOWNWARDS 96 ?G, DAILY
     Route: 037
  8. ZONISAMIDE. [Concomitant]
     Active Substance: ZONISAMIDE
     Indication: SEIZURE
     Dosage: UNK
     Route: 065
  9. ASPIRIN 81 [Concomitant]
     Active Substance: ASPIRIN
     Indication: PRODUCT USED FOR UNKNOWN INDICATION
     Dosage: 81 MG, UNK
     Route: 065
  10. BACLOFEN. [Suspect]
     Active Substance: BACLOFEN
     Indication: MUSCLE SPASTICITY
     Dosage: 589 ?G, PER DAY AT LEAST 6 YEARS
     Route: 037
  11. FLUOXETINE [Concomitant]
     Active Substance: FLUOXETINE HYDROCHLORIDE
     Indication: SEIZURE
     Dosage: 20 MG, UNK
     Route: 065
  12. ZOLPIDEM [Concomitant]
     Active Substance: ZOLPIDEM\ZOLPIDEM TARTRATE
     Indication: PRODUCT USED FOR UNKNOWN INDICATION
     Dosage: 10 MG EVERY BEDTIME, AS NEEDED
     Route: 065

REACTIONS (6)
  - Transient global amnesia [Recovered/Resolved]
  - Decreased appetite [Unknown]
  - Anxiety [Unknown]
  - Depressed mood [Unknown]
  - Disturbance in attention [Unknown]
  - Sleep disorder [Unknown]
